FAERS Safety Report 5006490-8 (Version None)
Quarter: 2006Q2

REPORT INFORMATION
  Report Type: 
  Country: None (occurrence: None)
  Receive Date: 20060516
  Receipt Date: 20060505
  Transmission Date: 20061013
  Serious: Yes (Hospitalization)
  Sender: FDA-Public Use
  Company Number: CIP06001008

PATIENT
  Age: 36 Year
  Sex: Female

DRUGS (1)
  1. ASACOL [Suspect]
     Indication: CROHN'S DISEASE
     Dosage: 2400 MG DAILY ORAL
     Route: 048
     Dates: start: 20060101, end: 20060320

REACTIONS (1)
  - CEREBELLAR INFARCTION [None]
